FAERS Safety Report 12548202 (Version 4)
Quarter: 2020Q1

REPORT INFORMATION
  Report Type: Spontaneous
  Country: US (occurrence: US)
  Receive Date: 20160712
  Receipt Date: 20200319
  Transmission Date: 20200409
  Serious: No
  Sender: FDA-Public Use
  Company Number: US-PFIZER INC-2016329611

PATIENT
  Age: 77 Year
  Sex: Female

DRUGS (17)
  1. BENICAR [Suspect]
     Active Substance: OLMESARTAN MEDOXOMIL
     Dosage: UNK
  2. SEPTRA DS [Suspect]
     Active Substance: SULFAMETHOXAZOLE\TRIMETHOPRIM
     Dosage: UNK
  3. KEFLEX [Suspect]
     Active Substance: CEPHALEXIN
     Dosage: UNK
  4. METFORMIN [Suspect]
     Active Substance: METFORMIN HYDROCHLORIDE
     Dosage: UNK
  5. NIASPAN ER [Suspect]
     Active Substance: NIACIN
     Dosage: UNK
  6. CHLORTHALIDONE. [Suspect]
     Active Substance: CHLORTHALIDONE
     Dosage: UNK
  7. HYDROCHLOROTHIAZIDE/LISINOPRIL [Suspect]
     Active Substance: HYDROCHLOROTHIAZIDE\LISINOPRIL
     Dosage: UNK
  8. SAXAGLIPTIN [Suspect]
     Active Substance: SAXAGLIPTIN
     Dosage: UNK
  9. LISINOPRIL. [Suspect]
     Active Substance: LISINOPRIL
     Dosage: UNK
  10. SITAGLIPTIN [Suspect]
     Active Substance: SITAGLIPTIN
     Dosage: UNK
  11. OXYCODONE [Suspect]
     Active Substance: OXYCODONE
     Dosage: UNK
  12. GLIMEPIRIDE. [Suspect]
     Active Substance: GLIMEPIRIDE
     Dosage: UNK
  13. HYDROCHLOROTHIAZIDE. [Suspect]
     Active Substance: HYDROCHLOROTHIAZIDE
     Dosage: UNK
  14. IODINE. [Suspect]
     Active Substance: IODINE
     Dosage: UNK
  15. BEXTRA [Suspect]
     Active Substance: VALDECOXIB
     Dosage: UNK
  16. CELEBREX [Suspect]
     Active Substance: CELECOXIB
     Indication: OSTEOARTHRITIS
     Dosage: UNK
     Route: 048
  17. LOTREL [Suspect]
     Active Substance: AMLODIPINE BESYLATE\BENAZEPRIL HYDROCHLORIDE
     Dosage: UNK

REACTIONS (1)
  - Drug hypersensitivity [Unknown]
